FAERS Safety Report 19248292 (Version 1)
Quarter: 2021Q2

REPORT INFORMATION
  Report Type: Spontaneous
  Country: US (occurrence: US)
  Receive Date: 20210512
  Receipt Date: 20210512
  Transmission Date: 20210717
  Serious: No
  Sender: FDA-Public Use
  Company Number: US-PFIZER INC-2021487540

PATIENT
  Age: 56 Year
  Sex: Male
  Weight: 88.3 kg

DRUGS (1)
  1. SUTENT [Suspect]
     Active Substance: SUNITINIB MALATE
     Indication: RENAL CANCER
     Dosage: 37.5 MG, 1X/DAY (ONCE DAILY)
     Route: 048
     Dates: start: 20210310

REACTIONS (3)
  - Taste disorder [Unknown]
  - Fatigue [Unknown]
  - Blood creatinine increased [Unknown]
